FAERS Safety Report 10983007 (Version 1)
Quarter: 2015Q1

REPORT INFORMATION
  Report Type: Spontaneous
  Country: NL (occurrence: None)
  Receive Date: 20150302
  Receipt Date: 20150302
  Transmission Date: 20150721
  Serious: Yes (Hospitalization)
  Sender: FDA-Public Use
  Company Number: 2014SYM00169

PATIENT
  Age: 52 Year
  Sex: Male
  Weight: 60 kg

DRUGS (14)
  1. AMLODIPINE BESILATE (AMLODIPINE BESILATE) [Concomitant]
     Active Substance: AMLODIPINE BESYLATE
  2. ASPIRIN. [Concomitant]
     Active Substance: ASPIRIN
  3. RESONIUM NATRIUM (SODIUM POLYSTYRENE SULFONATE) [Concomitant]
  4. SACCHARATED IRON OXIDE (SACCHARATED IRON OXIDE) [Concomitant]
  5. CINACALCET HYDROCHLORIDE (CINACALCET HYDROCHLORIDE) [Concomitant]
  6. PARACETAMOL (PARACETAMOL) [Concomitant]
     Active Substance: ACETAMINOPHEN
  7. TRAMAL (TRAMADOL HYDROCHLORIDE) [Concomitant]
  8. MULTIVITAMINS, COMBINATIONS [Concomitant]
  9. MOVICOLON (MACROGL, POTASSIUM CHLORIDE, SODIUM BICARBONATE, SODIUM CHLORIDE) [Concomitant]
  10. ACEON [Suspect]
     Active Substance: PERINDOPRIL ERBUMINE
     Indication: HYPERTENSION
     Route: 048
     Dates: start: 20141004, end: 20141011
  11. ALFACALCIDOL (ALFACALCIDOL) [Concomitant]
     Active Substance: ALFACALCIDOL
  12. DARBEPOETIN ALFA  (DARBEPOETIN ALFA) [Concomitant]
  13. NEXIUM [Concomitant]
     Active Substance: ESOMEPRAZOLE MAGNESIUM
  14. SEVELAMER (SEVELAMER) [Concomitant]

REACTIONS (2)
  - Anaemia [None]
  - Angioedema [None]

NARRATIVE: CASE EVENT DATE: 20141010
